FAERS Safety Report 6942802-3 (Version None)
Quarter: 2010Q3

REPORT INFORMATION
  Report Type: 
  Country: None (occurrence: None)
  Receive Date: 20100826
  Receipt Date: 20100817
  Transmission Date: 20110219
  Serious: Yes (Death)
  Sender: FDA-Public Use
  Company Number: GB-TEVA-245792ISR

PATIENT
  Age: 81 Year
  Sex: Female
  Weight: 60 kg

DRUGS (6)
  1. ETOPOSIDE [Suspect]
  2. MITOXANTRONE [Suspect]
     Indication: NON-HODGKIN'S LYMPHOMA
     Route: 042
  3. VINCRISTINE [Suspect]
  4. BLEOMYCIN SULFATE [Suspect]
  5. CYCLOPHOSPHAMIDE [Suspect]
  6. RITUXIMAB [Suspect]

REACTIONS (2)
  - CARDIOMYOPATHY [None]
  - IDIOSYNCRATIC DRUG REACTION [None]
